FAERS Safety Report 5039435-5 (Version None)
Quarter: 2006Q2

REPORT INFORMATION
  Report Type: 
  Country: None (occurrence: None)
  Receive Date: 20060623
  Receipt Date: 20060613
  Transmission Date: 20061013
  Serious: Yes (Other)
  Sender: FDA-Public Use
  Company Number: 2006075536

PATIENT
  Sex: Female

DRUGS (6)
  1. DETROL LA [Suspect]
     Indication: POLLAKIURIA
     Dosage: 6 MG (2 IN 1 D)
  2. DETROL [Suspect]
     Indication: POLLAKIURIA
     Dosage: 6 MG (2 IN 1 D)
     Dates: start: 20060601
  3. CHOLESTEROL- AND TRIGLYCERIDE REDUCERS (CHOLESTEROL- AND TRIGLYCERIDE [Concomitant]
  4. ASPIRIN [Concomitant]
  5. VITAMINS (VITAMINS) [Concomitant]
  6. ALL OTHER THERAPEUTIC PRODUCTS (ALL OTHER THERAPEUTIC PRODUCTS) [Concomitant]

REACTIONS (3)
  - DRUG INEFFECTIVE [None]
  - DRY MOUTH [None]
  - MACULAR DEGENERATION [None]
